FAERS Safety Report 9737035 (Version 1)
Quarter: 2013Q4

REPORT INFORMATION
  Report Type: Spontaneous
  Country: US (occurrence: US)
  Receive Date: 20131206
  Receipt Date: 20131206
  Transmission Date: 20140711
  Serious: No
  Sender: FDA-Public Use
  Company Number: US-GILEAD-2009-0024242

PATIENT
  Age: 57 Year
  Sex: Female

DRUGS (13)
  1. LETAIRIS [Suspect]
     Indication: PULMONARY ARTERIAL HYPERTENSION
     Route: 048
     Dates: start: 20090313
  2. FLOLAN [Concomitant]
  3. PREDNISONE [Concomitant]
  4. HYDROXYCHLOROQUINE [Concomitant]
  5. PROMETHAZINE [Concomitant]
  6. AMITRIPTYLINE [Concomitant]
  7. KLOR-CON [Concomitant]
  8. GABAPENTIN [Concomitant]
  9. WARFARIN [Concomitant]
  10. FUROSEMIDE [Concomitant]
  11. METHOTREXATE [Concomitant]
  12. PREMARIN [Concomitant]
  13. FOLIC ACID [Concomitant]

REACTIONS (1)
  - Anaemia [Not Recovered/Not Resolved]
